FAERS Safety Report 7311880-4 (Version None)
Quarter: 2011Q1

REPORT INFORMATION
  Report Type: 
  Country: None (occurrence: None)
  Receive Date: 20110215
  Receipt Date: 20110215
  Transmission Date: 20110831
  Serious: Yes (Other)
  Sender: FDA-Public Use
  Company Number: None

PATIENT
  Age: 52 Year
  Sex: Female
  Weight: 72.1219 kg

DRUGS (3)
  1. XANAX [Concomitant]
  2. FLAGYL [Concomitant]
  3. LEVAQUIN [Suspect]
     Indication: SINUSITIS
     Dosage: 500 MG 2 TIMES/DAY ORAL
     Route: 048
     Dates: start: 20101230

REACTIONS (14)
  - ANXIETY [None]
  - EATING DISORDER [None]
  - VISUAL IMPAIRMENT [None]
  - COLD SWEAT [None]
  - PARAESTHESIA [None]
  - DYSPNOEA [None]
  - VOMITING [None]
  - NAUSEA [None]
  - CARDIAC FLUTTER [None]
  - PALPITATIONS [None]
  - TREMOR [None]
  - DECREASED APPETITE [None]
  - CLOSTRIDIAL INFECTION [None]
  - WEIGHT DECREASED [None]
